FAERS Safety Report 5797890-7 (Version None)
Quarter: 2008Q3

REPORT INFORMATION
  Report Type: 
  Country: None (occurrence: None)
  Receive Date: 20080702
  Receipt Date: 20080630
  Transmission Date: 20090109
  Serious: Yes (Other)
  Sender: FDA-Public Use
  Company Number: US-RB-007845-07

PATIENT
  Sex: Female
  Weight: 58.5 kg

DRUGS (1)
  1. SUBUTEX [Suspect]
     Route: 060
     Dates: start: 20070507

REACTIONS (2)
  - ABORTION SPONTANEOUS [None]
  - DRUG EXPOSURE DURING PREGNANCY [None]
